FAERS Safety Report 6115574-2 (Version None)
Quarter: 2009Q1

REPORT INFORMATION
  Report Type: 
  Country: None (occurrence: None)
  Receive Date: 20090313
  Receipt Date: 20090303
  Transmission Date: 20090719
  Serious: Yes (Hospitalization, Other)
  Sender: FDA-Public Use
  Company Number: CA-ABBOTT-08P-028-0490687-00

PATIENT
  Sex: Male
  Weight: 78 kg

DRUGS (3)
  1. HUMIRA [Suspect]
     Indication: PSORIASIS
     Route: 058
     Dates: start: 20081106
  2. TYLENOL (CAPLET) [Concomitant]
     Indication: HEADACHE
     Dates: start: 19880101
  3. ROBAXACET PLATINE [Concomitant]
     Indication: INTERVERTEBRAL DISC PROTRUSION
     Dates: start: 20070701

REACTIONS (3)
  - DIVERTICULAR PERFORATION [None]
  - DIVERTICULITIS MECKEL'S [None]
  - PERITONITIS [None]
